FAERS Safety Report 5546786-4 (Version None)
Quarter: 2007Q4

REPORT INFORMATION
  Report Type: 
  Country: None (occurrence: None)
  Receive Date: 20071211
  Receipt Date: 20071205
  Transmission Date: 20080405
  Serious: Yes (Disabling)
  Sender: FDA-Public Use
  Company Number: US-ROCHE-515381

PATIENT
  Age: 57 Year
  Sex: Male
  Weight: 94.5 kg

DRUGS (12)
  1. PEG-INTERFERON ALFA 2A (RO 25-8310) [Suspect]
     Dosage: 360 MCG IN 1 ML SOLUTION ADMINISTERED SUBCUTANEOUS ONCE WEEKLY FOR 12 WEEKS.
     Route: 058
     Dates: start: 20070507, end: 20070730
  2. PEG-INTERFERON ALFA 2A (RO 25-8310) [Suspect]
     Dosage: DOSAGE FORM: VIAL. 180 MCG IN 1 ML SOLUTION ADMINISTERED SUBCUTANEOUS ONCE WEEKLY FOR 36 WEEKS.
     Route: 058
     Dates: start: 20070731, end: 20070904
  3. RIBAVIRIN [Suspect]
     Dosage: GIVEN IN SPLIT DOSES IN THE MORNING AND IN THE EVENING FOR 48 WEEKS.
     Route: 048
     Dates: start: 20070507, end: 20070904
  4. LAMICTAL [Suspect]
     Indication: DRUG USE FOR UNKNOWN INDICATION
     Route: 065
  5. CYMBALTA [Suspect]
     Indication: DRUG USE FOR UNKNOWN INDICATION
     Route: 065
  6. KEPPRA [Suspect]
     Indication: DRUG USE FOR UNKNOWN INDICATION
     Route: 065
  7. DYAZIDE [Suspect]
     Indication: DRUG USE FOR UNKNOWN INDICATION
     Route: 065
  8. ACIPHEX [Suspect]
     Indication: DRUG USE FOR UNKNOWN INDICATION
     Route: 065
  9. SINGULAIR [Concomitant]
  10. ALBUTEROL [Concomitant]
  11. MULTIVITAMIN NOS [Concomitant]
  12. UNSPECIFIED DRUG [Concomitant]
     Dosage: NEBULIZER.

REACTIONS (1)
  - RETINAL DETACHMENT [None]
